FAERS Safety Report 25573979 (Version 1)
Quarter: 2025Q3

REPORT INFORMATION
  Report Type: Spontaneous
  Country: CN (occurrence: CN)
  Receive Date: 20250717
  Receipt Date: 20250717
  Transmission Date: 20251020
  Serious: Yes (Hospitalization)
  Sender: MERCK SHARP & DOHME LLC
  Company Number: CN-009507513-2308843

PATIENT
  Age: 59 Year
  Sex: Female
  Weight: 62 kg

DRUGS (2)
  1. TEMODAL [Suspect]
     Active Substance: TEMOZOLOMIDE
     Indication: Glioma
     Route: 048
     Dates: start: 20250321, end: 20250430
  2. KEPPRA [Concomitant]
     Active Substance: LEVETIRACETAM
     Indication: Prophylaxis
     Route: 048
     Dates: start: 20250215, end: 20250507

REACTIONS (1)
  - Drug eruption [Recovering/Resolving]

NARRATIVE: CASE EVENT DATE: 20250510
